FAERS Safety Report 13828351 (Version 5)
Quarter: 2017Q4

REPORT INFORMATION
  Report Type: Spontaneous
  Country: US (occurrence: US)
  Receive Date: 20170803
  Receipt Date: 20171011
  Transmission Date: 20180320
  Serious: Yes (Other)
  Sender: FDA-Public Use
  Company Number: US-PFIZER INC-2017227759

PATIENT
  Age: 69 Year
  Sex: Female
  Weight: 87.85 kg

DRUGS (11)
  1. SUTENT [Suspect]
     Active Substance: SUNITINIB MALATE
     Dosage: 25 MG, DAILY (2 CAPSULES OF 12.5 MG)
     Route: 048
     Dates: start: 20170609
  2. METFORMIN [Concomitant]
     Active Substance: METFORMIN HYDROCHLORIDE
     Dosage: UNK
  3. SUTENT [Suspect]
     Active Substance: SUNITINIB MALATE
     Dosage: 25 MG, DAILY
     Route: 048
     Dates: start: 20170609, end: 201707
  4. WELLBUTRIN [Concomitant]
     Active Substance: BUPROPION HYDROCHLORIDE
     Dosage: UNK
  5. VITAMIN D /00107901/ [Concomitant]
     Active Substance: ERGOCALCIFEROL
     Dosage: UNK
  6. FERROUS SULFATE. [Concomitant]
     Active Substance: FERROUS SULFATE
     Dosage: UNK
  7. AMARYL [Concomitant]
     Active Substance: GLIMEPIRIDE
     Dosage: UNK
  8. PERI-COLACE [Concomitant]
     Active Substance: CASANTHRANOL\DOCUSATE SODIUM
     Dosage: UNK
  9. EFFEXOR [Concomitant]
     Active Substance: VENLAFAXINE HYDROCHLORIDE
     Dosage: UNK
  10. SUTENT [Suspect]
     Active Substance: SUNITINIB MALATE
     Indication: METASTATIC RENAL CELL CARCINOMA
     Dosage: 12.5 MG, CYCLIC (1 CAP QD X 2 WEEKS THEN 2 CAP)
  11. JARDIANCE [Concomitant]
     Active Substance: EMPAGLIFLOZIN
     Dosage: UNK

REACTIONS (15)
  - Hypotension [Unknown]
  - Vomiting [Unknown]
  - Loss of consciousness [Unknown]
  - Dehydration [Unknown]
  - Decreased appetite [Unknown]
  - Palpitations [Unknown]
  - Asthenia [Unknown]
  - Syncope [Unknown]
  - Dysgeusia [Unknown]
  - Tremor [Unknown]
  - Cognitive disorder [Unknown]
  - Dizziness [Not Recovered/Not Resolved]
  - Amnesia [Unknown]
  - Ageusia [Unknown]
  - Nausea [Unknown]
